FAERS Safety Report 8468769-7 (Version None)
Quarter: 2012Q2

REPORT INFORMATION
  Report Type: 
  Country: None (occurrence: None)
  Receive Date: 20120626
  Receipt Date: 20120611
  Transmission Date: 20120825
  Serious: Yes (Other)
  Sender: FDA-Public Use
  Company Number: JP-ROCHE-1077595

PATIENT

DRUGS (3)
  1. AVASTIN [Suspect]
     Indication: NON-SMALL CELL LUNG CANCER
     Route: 065
  2. GIMERACIL AND OTERACIL POTASSIUM [Suspect]
     Indication: NON-SMALL CELL LUNG CANCER
     Route: 048
  3. CISPLATIN [Suspect]
     Indication: NON-SMALL CELL LUNG CANCER
     Route: 065

REACTIONS (11)
  - ANAEMIA [None]
  - HYPERTENSION [None]
  - DECREASED APPETITE [None]
  - HYPONATRAEMIA [None]
  - BLOOD ALKALINE PHOSPHATASE INCREASED [None]
  - THROMBOCYTOPENIA [None]
  - LEUKOPENIA [None]
  - STOMATITIS [None]
  - AMYLASE INCREASED [None]
  - NEUTROPENIA [None]
  - FEBRILE NEUTROPENIA [None]
